FAERS Safety Report 17130743 (Version 1)
Quarter: 2019Q4

REPORT INFORMATION
  Report Type: Report from Study
  Country: US (occurrence: US)
  Receive Date: 20191209
  Receipt Date: 20191209
  Transmission Date: 20200122
  Serious: No
  Sender: FDA-Public Use
  Company Number: NVSC2019US060150

PATIENT
  Sex: Female

DRUGS (6)
  1. MAYZENT [Suspect]
     Active Substance: SIPONIMOD
     Indication: MULTIPLE SCLEROSIS
     Dosage: UNK, QD
     Route: 048
     Dates: start: 20191128
  2. MAYZENT [Suspect]
     Active Substance: SIPONIMOD
     Dosage: 2 DF
     Route: 048
     Dates: start: 20191202
  3. MAYZENT [Suspect]
     Active Substance: SIPONIMOD
     Dosage: 1 DF (DAY 2)
     Route: 048
     Dates: start: 20191129
  4. MAYZENT [Suspect]
     Active Substance: SIPONIMOD
     Dosage: 1 DF (DAY 4 SHE TOOK ONLY 1 TAB INSTEAD OF 3)
     Route: 048
     Dates: start: 20191201
  5. MAYZENT [Suspect]
     Active Substance: SIPONIMOD
     Dosage: 1 DF (DAY 1)
     Route: 048
     Dates: start: 20191128
  6. MAYZENT [Suspect]
     Active Substance: SIPONIMOD
     Dosage: 2 DF (DAY 3)
     Route: 048
     Dates: start: 20191130

REACTIONS (1)
  - Drug titration error [Unknown]
